FAERS Safety Report 17105161 (Version 4)
Quarter: 2020Q1

REPORT INFORMATION
  Report Type: Spontaneous
  Country: US (occurrence: US)
  Receive Date: 20191203
  Receipt Date: 20200213
  Transmission Date: 20200409
  Serious: No
  Sender: FDA-Public Use
  Company Number: US-SA-2019SA332717

PATIENT
  Age: 59 Year
  Sex: Female
  Weight: 61.6 kg

DRUGS (2)
  1. HUMIRA [Suspect]
     Active Substance: ADALIMUMAB
  2. KEVZARA [Suspect]
     Active Substance: SARILUMAB
     Indication: RHEUMATOID ARTHRITIS
     Dosage: 200 MG, QOW
     Route: 058
     Dates: start: 20190913, end: 2019

REACTIONS (6)
  - Headache [Unknown]
  - Injection site reaction [Recovering/Resolving]
  - Musculoskeletal pain [Not Recovered/Not Resolved]
  - Injection site erythema [Recovering/Resolving]
  - Tearfulness [Unknown]
  - Injection site erythema [Recovering/Resolving]

NARRATIVE: CASE EVENT DATE: 2019
